FAERS Safety Report 19675580 (Version 1)
Quarter: 2021Q3

REPORT INFORMATION
  Report Type: Spontaneous
  Country: DE (occurrence: DE)
  Receive Date: 20210809
  Receipt Date: 20210809
  Transmission Date: 20211014
  Serious: Yes (Other)
  Sender: FDA-Public Use
  Company Number: DE-MYLANLABS-2021M1048648

PATIENT
  Sex: Female

DRUGS (8)
  1. PREDNISOLONE. [Suspect]
     Active Substance: PREDNISOLONE
     Indication: PRODUCT USED FOR UNKNOWN INDICATION
     Dosage: UNK
  2. LINEZOLID. [Concomitant]
     Active Substance: LINEZOLID
     Dosage: UNK
  3. KALYDECO [Concomitant]
     Active Substance: IVACAFTOR
     Dosage: UNK
  4. AMIKACIN. [Concomitant]
     Active Substance: AMIKACIN
     Dosage: UNK
  5. PANTOPRAZOL                        /01263201/ [Concomitant]
     Active Substance: PANTOPRAZOLE
     Dosage: UNK
  6. ONDANSETRON [Concomitant]
     Active Substance: ONDANSETRON
     Dosage: UNK
  7. AZITHROMYCIN ANHYDROUS. [Concomitant]
     Active Substance: AZITHROMYCIN ANHYDROUS
     Dosage: UNK
  8. TIGECYCLINE. [Concomitant]
     Active Substance: TIGECYCLINE
     Dosage: UNK

REACTIONS (1)
  - Type 1 diabetes mellitus [Unknown]
